FAERS Safety Report 10472996 (Version 2)
Quarter: 2014Q4

REPORT INFORMATION
  Report Type: Report from Study
  Country: CA (occurrence: CA)
  Receive Date: 20140924
  Receipt Date: 20141028
  Transmission Date: 20150528
  Serious: Yes (Life-Threatening)
  Sender: FDA-Public Use
  Company Number: CA-JNJFOC-20140913888

PATIENT
  Age: 24 Year
  Sex: Male
  Weight: 79 kg

DRUGS (9)
  1. REMICADE [Suspect]
     Active Substance: INFLIXIMAB
     Indication: COLITIS ULCERATIVE
     Route: 042
     Dates: start: 20140416
  2. FOLIC ACID. [Concomitant]
     Active Substance: FOLIC ACID
     Route: 065
  3. BUSPIRONE [Concomitant]
     Active Substance: BUSPIRONE HYDROCHLORIDE
     Route: 065
  4. VENTOLIN [Concomitant]
     Active Substance: ALBUTEROL SULFATE
     Route: 065
  5. URSODIOL. [Concomitant]
     Active Substance: URSODIOL
     Route: 065
  6. ALVESCO [Concomitant]
     Active Substance: CICLESONIDE
     Route: 065
  7. PREDNISONE. [Concomitant]
     Active Substance: PREDNISONE
     Route: 065
  8. AZATHIOPRINE. [Concomitant]
     Active Substance: AZATHIOPRINE
     Route: 065
  9. REMICADE [Suspect]
     Active Substance: INFLIXIMAB
     Indication: COLITIS ULCERATIVE
     Route: 042
     Dates: start: 20140916

REACTIONS (9)
  - Throat tightness [Recovered/Resolved]
  - Nausea [Recovered/Resolved]
  - Hypoaesthesia [Recovered/Resolved]
  - Dry mouth [Recovered/Resolved]
  - Eyelid oedema [Recovered/Resolved]
  - Tremor [Recovered/Resolved]
  - Infusion related reaction [Recovered/Resolved]
  - Pruritus [Recovered/Resolved]
  - Paraesthesia [Recovered/Resolved]

NARRATIVE: CASE EVENT DATE: 20140916
